FAERS Safety Report 7832269-5 (Version None)
Quarter: 2011Q4

REPORT INFORMATION
  Report Type: 
  Country: None (occurrence: None)
  Receive Date: 20111022
  Receipt Date: 20111005
  Transmission Date: 20120403
  Serious: Yes (Hospitalization, Other)
  Sender: FDA-Public Use
  Company Number: US-BAYER-2011-050545

PATIENT
  Age: 27 Year
  Sex: Female
  Weight: 70 kg

DRUGS (5)
  1. PERCOCET [Concomitant]
  2. ACIPHEX [Concomitant]
     Dosage: 20 MG, QD
  3. YAZ [Suspect]
     Indication: CONTRACEPTION
     Dosage: UNK
     Dates: start: 20070101, end: 20090101
  4. REGLAN [Concomitant]
     Dosage: 10 MG, UNK
  5. LEVAQUIN [Concomitant]

REACTIONS (4)
  - GALLBLADDER DISORDER [None]
  - INJURY [None]
  - CHOLECYSTITIS CHRONIC [None]
  - PAIN [None]
